FAERS Safety Report 7060593-5 (Version None)
Quarter: 2010Q4

REPORT INFORMATION
  Report Type: 
  Country: None (occurrence: None)
  Receive Date: 20101025
  Receipt Date: 20101014
  Transmission Date: 20110411
  Serious: Yes (Other)
  Sender: FDA-Public Use
  Company Number: PHHY2010JP69379

PATIENT

DRUGS (3)
  1. FLUVASTATIN [Suspect]
     Indication: DYSLIPIDAEMIA
     Dosage: UNK
     Route: 048
  2. PLAVIX [Suspect]
     Dosage: UNK
     Route: 048
  3. CONTRAST MEDIA [Suspect]
     Dosage: UNK

REACTIONS (2)
  - DRUG ERUPTION [None]
  - PERCUTANEOUS CORONARY INTERVENTION [None]
